FAERS Safety Report 8572989-0 (Version None)
Quarter: 2012Q3

REPORT INFORMATION
  Report Type: 
  Country: None (occurrence: None)
  Receive Date: 20120806
  Receipt Date: 20120724
  Transmission Date: 20120928
  Serious: No
  Sender: FDA-Public Use
  Company Number: JP-PFIZER INC-2012179867

PATIENT
  Age: 37 Year
  Sex: Female

DRUGS (12)
  1. ZOLPIDEM TARTRATE [Suspect]
     Dosage: UNK
     Route: 048
  2. PREDNISOLONE [Concomitant]
  3. NEORAL [Concomitant]
     Dosage: UNK
     Route: 048
  4. CYCLOPHOSPHAMIDE [Concomitant]
     Dosage: UNK
  5. LANSOPRAZOLE [Concomitant]
     Dosage: UNK
  6. TALION [Concomitant]
     Dosage: UNK
  7. PURSENNID [Concomitant]
     Dosage: UNK
  8. CELEBREX [Suspect]
     Dosage: UNK
     Route: 048
  9. SULFAMETHOXAZOLE AND TRIMETHOPRIM [Concomitant]
     Dosage: UNK
     Route: 048
  10. MAG-LAX [Concomitant]
     Dosage: UNK
     Route: 048
  11. GRANISETRON [Concomitant]
     Dosage: UNK
  12. LIPITOR [Suspect]
     Dosage: UNK
     Route: 048

REACTIONS (1)
  - MALAISE [None]
